FAERS Safety Report 8187215-4 (Version None)
Quarter: 2012Q1

REPORT INFORMATION
  Report Type: 
  Country: None (occurrence: None)
  Receive Date: 20120216
  Receipt Date: 20111118
  Transmission Date: 20120608
  Serious: Yes (Hospitalization)
  Sender: FDA-Public Use
  Company Number: 20111104CINRY2431

PATIENT
  Age: 50 Year
  Sex: Female
  Weight: 110.6777 kg

DRUGS (5)
  1. KLONOPIN [Concomitant]
  2. CINRYZE [Suspect]
     Indication: HEREDITARY ANGIOEDEMA
     Dosage: (1000 IU, 1 IN 3 D), INTRAVENOUS
     Route: 042
     Dates: start: 20100803
  3. VITAMIN D [Concomitant]
  4. CELEXA [Concomitant]
  5. SYNTHROID [Concomitant]

REACTIONS (2)
  - HEREDITARY ANGIOEDEMA [None]
  - OFF LABEL USE [None]
